FAERS Safety Report 5925981-6 (Version None)
Quarter: 2008Q4

REPORT INFORMATION
  Report Type: 
  Country: None (occurrence: None)
  Receive Date: 20081021
  Receipt Date: 20081015
  Transmission Date: 20090506
  Serious: Yes (Hospitalization, Other)
  Sender: FDA-Public Use
  Company Number: GB-B.I. PHARMACEUTICALS,INC./RIDGEFIELD-2007-DE-07029GD

PATIENT

DRUGS (5)
  1. MELOXICAM [Suspect]
  2. DIPYRIDAMOLE [Suspect]
     Indication: THROMBOSIS PROPHYLAXIS
  3. IBUPROFEN [Suspect]
  4. NAPROXEN [Suspect]
  5. ASPIRIN [Suspect]
     Indication: THROMBOSIS PROPHYLAXIS
     Dosage: 75MG

REACTIONS (2)
  - PEPTIC ULCER PERFORATION [None]
  - UPPER GASTROINTESTINAL HAEMORRHAGE [None]
